FAERS Safety Report 10186616 (Version 2)
Quarter: 2014Q2

REPORT INFORMATION
  Report Type: Report from Study
  Country: NL (occurrence: NL)
  Receive Date: 20140521
  Receipt Date: 20140521
  Transmission Date: 20141212
  Serious: Yes (Disabling)
  Sender: FDA-Public Use
  Company Number: NL-ABBVIE-12P-114-0901512-00

PATIENT
  Age: 70 Year
  Sex: Male

DRUGS (1)
  1. LUCRIN [Suspect]
     Indication: PROSTATE CANCER
     Route: 058
     Dates: start: 20111111, end: 20140514

REACTIONS (2)
  - Terminal state [Not Recovered/Not Resolved]
  - Hot flush [Not Recovered/Not Resolved]
